FAERS Safety Report 5369361-3 (Version None)
Quarter: 2007Q2

REPORT INFORMATION
  Report Type: 
  Country: None (occurrence: None)
  Receive Date: 20070625
  Receipt Date: 20070322
  Transmission Date: 20071010
  Serious: No
  Sender: FDA-Public Use
  Company Number: US-ASTRAZENECA-2007UW05635

PATIENT
  Age: 41 Year
  Sex: Female
  Weight: 63.5 kg

DRUGS (4)
  1. CRESTOR [Suspect]
     Indication: BLOOD CHOLESTEROL INCREASED
     Route: 048
  2. SYNTHROID [Concomitant]
  3. PREMPRO [Concomitant]
  4. LEXAPRO [Concomitant]

REACTIONS (3)
  - ARTHRALGIA [None]
  - HYPOAESTHESIA [None]
  - PARAESTHESIA [None]
